FAERS Safety Report 10261976 (Version 1)
Quarter: 2014Q2

REPORT INFORMATION
  Report Type: Spontaneous
  Country: US (occurrence: US)
  Receive Date: 20140626
  Receipt Date: 20140626
  Transmission Date: 20141212
  Serious: No
  Sender: FDA-Public Use
  Company Number: US-PFIZER INC-2014174781

PATIENT
  Age: 64 Year
  Sex: Male
  Weight: 64.85 kg

DRUGS (1)
  1. NICOTROL INHALER [Suspect]
     Indication: SMOKING CESSATION THERAPY
     Dosage: UNK
     Dates: start: 20140618, end: 20140619

REACTIONS (2)
  - Somnolence [Recovering/Resolving]
  - Abnormal behaviour [Recovering/Resolving]
